FAERS Safety Report 17196814 (Version 1)
Quarter: 2019Q4

REPORT INFORMATION
  Report Type: Spontaneous
  Country: US (occurrence: US)
  Receive Date: 20191224
  Receipt Date: 20191224
  Transmission Date: 20200122
  Serious: Yes (Death, Hospitalization)
  Sender: FDA-Public Use
  Company Number: US-TEVA-2019-US-1157482

PATIENT
  Age: 81 Year
  Sex: Male

DRUGS (2)
  1. LEVETIRACETAM. [Suspect]
     Active Substance: LEVETIRACETAM
     Route: 048
  2. LACOSAMIDE. [Suspect]
     Active Substance: LACOSAMIDE
     Route: 048

REACTIONS (7)
  - Bradycardia [Unknown]
  - Toxicity to various agents [Fatal]
  - Intentional overdose [Fatal]
  - Seizure [Unknown]
  - Ventricular tachycardia [Unknown]
  - Completed suicide [Fatal]
  - Atrioventricular block complete [Fatal]
